FAERS Safety Report 7539438-2 (Version None)
Quarter: 2011Q2

REPORT INFORMATION
  Report Type: 
  Country: None (occurrence: None)
  Receive Date: 20110610
  Receipt Date: 20110607
  Transmission Date: 20111010
  Serious: Yes (Other)
  Sender: FDA-Public Use
  Company Number: US-PFIZER INC-2011124240

PATIENT
  Sex: Male
  Weight: 86.168 kg

DRUGS (2)
  1. CYMBALTA [Concomitant]
     Dosage: UNK
  2. XANAX [Suspect]
     Indication: ANXIETY
     Dosage: 2 MG, 2X/DAY
     Route: 048
     Dates: start: 20100401, end: 20100701

REACTIONS (1)
  - ROAD TRAFFIC ACCIDENT [None]
